FAERS Safety Report 14879710 (Version 2)
Quarter: 2018Q2

REPORT INFORMATION
  Report Type: Spontaneous
  Country: US (occurrence: US)
  Receive Date: 20180511
  Receipt Date: 20180606
  Transmission Date: 20180711
  Serious: Yes (Other)
  Sender: FDA-Public Use
  Company Number: US-JNJFOC-20180438136

PATIENT
  Sex: Male
  Weight: 77.57 kg

DRUGS (2)
  1. POLYSPORIN FIRST AID ANTIBIOTIC [Suspect]
     Active Substance: BACITRACIN\POLYMYXIN B SULFATE
     Indication: SKIN WOUND
     Route: 061
     Dates: start: 20180324
  2. WARFARIN [Concomitant]
     Active Substance: WARFARIN
     Indication: ATRIAL FIBRILLATION
     Route: 065

REACTIONS (2)
  - Wound infection [Recovering/Resolving]
  - Skin wound [Recovering/Resolving]

NARRATIVE: CASE EVENT DATE: 2018
